FAERS Safety Report 8827423 (Version 1)
Quarter: 2012Q4

REPORT INFORMATION
  Report Type: 
  Country: US (occurrence: US)
  Receive Date: 20121005
  Receipt Date: 20121005
  Transmission Date: 20130627
  Serious: No
  Sender: FDA-Public Use
  Company Number: US-BRISTOL-MYERS SQUIBB COMPANY-16550980

PATIENT
  Age: 63 Year
  Sex: Female
  Weight: 54 kg

DRUGS (2)
  1. AVAPRO [Suspect]
     Dosage: interr in Mar-2012
Intially 150mg then Increased to 300mg then decreased back to 150mg
  2. TOPROL XL [Suspect]

REACTIONS (4)
  - Tinnitus [Unknown]
  - Blood pressure increased [Unknown]
  - Headache [Unknown]
  - Hypersensitivity [Unknown]
